FAERS Safety Report 6154490-7 (Version None)
Quarter: 2009Q2

REPORT INFORMATION
  Report Type: 
  Country: None (occurrence: None)
  Receive Date: 20090414
  Receipt Date: 20090216
  Transmission Date: 20091009
  Serious: Yes (Hospitalization)
  Sender: FDA-Public Use
  Company Number: AR-AMGEN-US335365

PATIENT
  Sex: Female
  Weight: 60 kg

DRUGS (6)
  1. ENBREL [Suspect]
     Indication: RHEUMATOID ARTHRITIS
     Route: 058
     Dates: start: 20080208
  2. CEFALEXIN [Concomitant]
  3. SUPRAGESIC [Concomitant]
     Indication: PAIN
     Dosage: 1 TABLET, FREQUENCY UNSPECIFIED
  4. SUPRAGESIC [Concomitant]
     Indication: INFLAMMATION
  5. ACETAMINOPHEN W/ CODEINE [Concomitant]
     Indication: PAIN
  6. ACETAMINOPHEN W/ CODEINE [Concomitant]
     Indication: INFLAMMATION

REACTIONS (2)
  - LEG AMPUTATION [None]
  - SKIN ULCER HAEMORRHAGE [None]
